FAERS Safety Report 9664897 (Version 1)
Quarter: 2013Q4

REPORT INFORMATION
  Report Type: Report from Study
  Country: JP (occurrence: JP)
  Receive Date: 20131101
  Receipt Date: 20131101
  Transmission Date: 20140711
  Serious: Yes (Other)
  Sender: FDA-Public Use
  Company Number: JP-GLAXOSMITHKLINE-B0938179A

PATIENT
  Age: 68 Year
  Sex: Female

DRUGS (14)
  1. LAMICTAL [Suspect]
     Indication: CYCLOTHYMIC DISORDER
     Dosage: 25MG PER DAY
     Route: 048
     Dates: start: 20120419, end: 20120504
  2. LAMICTAL [Suspect]
     Indication: CYCLOTHYMIC DISORDER
     Dosage: 50MG PER DAY
     Route: 048
     Dates: start: 20120505, end: 20120522
  3. LAMICTAL [Suspect]
     Indication: CYCLOTHYMIC DISORDER
     Dosage: 50MG TWICE PER DAY
     Route: 048
     Dates: start: 20120523, end: 20120525
  4. ZYPREXA [Suspect]
     Route: 048
     Dates: end: 20120509
  5. ZYPREXA [Suspect]
     Route: 048
     Dates: start: 20120509, end: 20120516
  6. CONSTAN [Concomitant]
     Route: 048
  7. MIRTAZAPINE [Concomitant]
     Route: 048
  8. GASMOTIN [Concomitant]
     Dosage: 15MG THREE TIMES PER DAY
     Route: 048
  9. NEUQUINON [Concomitant]
     Dosage: 30MG THREE TIMES PER DAY
     Route: 048
  10. TASMOLIN [Concomitant]
     Dosage: 3MG THREE TIMES PER DAY
     Route: 048
  11. MAGMITT [Concomitant]
     Dosage: 100MG TWICE PER DAY
     Route: 048
  12. EPADEL [Concomitant]
     Dosage: 1800MG TWICE PER DAY
     Route: 048
  13. NE-SOFT [Concomitant]
     Dosage: 400MG TWICE PER DAY
     Route: 048
  14. SYMMETREL [Concomitant]
     Dosage: 100MG PER DAY
     Route: 048

REACTIONS (1)
  - Blood creatine phosphokinase increased [Recovered/Resolved]
